FAERS Safety Report 5200921-6 (Version None)
Quarter: 2007Q1

REPORT INFORMATION
  Report Type: 
  Country: None (occurrence: None)
  Receive Date: 20070103
  Receipt Date: 20061221
  Transmission Date: 20070707
  Serious: Yes (Death)
  Sender: FDA-Public Use
  Company Number: 2006SP008794

PATIENT
  Age: 69 Year
  Sex: Female
  Weight: 43 kg

DRUGS (2)
  1. PEG-INTRON [Suspect]
     Indication: HEPATITIS C
     Dosage: 60 MCG, QW, SC
     Route: 058
     Dates: start: 20061017, end: 20061107
  2. REBETOL [Suspect]
     Indication: HEPATITIS C
     Dosage: 600 MG, QD; PO
     Route: 048
     Dates: start: 20061017, end: 20061101

REACTIONS (3)
  - DISSEMINATED INTRAVASCULAR COAGULATION [None]
  - INTERSTITIAL LUNG DISEASE [None]
  - MULTI-ORGAN DISORDER [None]
